FAERS Safety Report 8540664-4 (Version None)
Quarter: 2012Q3

REPORT INFORMATION
  Report Type: 
  Country: None (occurrence: None)
  Receive Date: 20120726
  Receipt Date: 20120719
  Transmission Date: 20120928
  Serious: No
  Sender: FDA-Public Use
  Company Number: US-B.I. PHARMACEUTICALS,INC./RIDGEFIELD-2012-BP-16157BP

PATIENT
  Sex: Male

DRUGS (12)
  1. CIALIS [Concomitant]
     Indication: ERECTILE DYSFUNCTION
     Route: 048
  2. METOPROLOL SUCCINATE [Concomitant]
     Indication: HYPERTENSION
     Dosage: 25 MG
     Route: 048
  3. LISINOPRIL [Concomitant]
     Indication: HYPERTENSION
     Dosage: 2.5 MG
     Route: 048
  4. SPIRIVA [Suspect]
     Indication: CHRONIC OBSTRUCTIVE PULMONARY DISEASE
     Dosage: 18 MCG
     Route: 055
     Dates: start: 20120714
  5. SPIRIVA [Suspect]
     Indication: COUGH
  6. LEVETIRACETAM [Concomitant]
     Indication: CONVULSION
     Dosage: 750 MG
     Route: 048
  7. ASCORBIC ACID [Concomitant]
     Indication: NUTRITIONAL SUPPORT
     Route: 048
  8. ASPIRIN [Concomitant]
     Indication: PROPHYLAXIS
     Dosage: 81 MG
     Route: 048
  9. METFORMIN HYDROCHLORIDE [Concomitant]
     Indication: DIABETES MELLITUS
     Dosage: 1000 MG
     Route: 048
  10. NEXIUM [Concomitant]
     Indication: GASTROOESOPHAGEAL REFLUX DISEASE
     Dosage: 40 MG
     Route: 048
  11. CRESTOR [Concomitant]
     Indication: LIPIDS INCREASED
     Dosage: 20 MG
     Route: 048
  12. METAMUCIL-2 [Concomitant]
     Indication: NUTRITIONAL SUPPORT

REACTIONS (1)
  - LEUKOPLAKIA ORAL [None]
